FAERS Safety Report 21606489 (Version 1)
Quarter: 2022Q4

REPORT INFORMATION
  Report Type: Spontaneous
  Country: US (occurrence: US)
  Receive Date: 20221117
  Receipt Date: 20221117
  Transmission Date: 20230113
  Serious: No
  Sender: FDA-Public Use
  Company Number: US-BIOGEN-2022BI01132820

PATIENT
  Sex: Female

DRUGS (3)
  1. VUMERITY [Suspect]
     Active Substance: DIROXIMEL FUMARATE
     Indication: Multiple sclerosis
     Dosage: 231 MG CAPSULE - TAKE 1 CAPSULE BY MOUTH 2 TIMES A DAY FOR 7 DAYS THEN 2 CAPSULES TWICE DAILY THE...
     Route: 050
     Dates: start: 20210611, end: 20210617
  2. VUMERITY [Suspect]
     Active Substance: DIROXIMEL FUMARATE
     Dosage: 231 MG CAPSULE - TAKE 1 CAPSULE BY MOUTH 2 TIMES A DAY FOR 7 DAYS THEN 2 CAPSULES TWICE DAILY THE...
     Route: 050
     Dates: start: 20210618
  3. VUMERITY [Suspect]
     Active Substance: DIROXIMEL FUMARATE
     Route: 050
     Dates: start: 20210603

REACTIONS (3)
  - Constipation [Unknown]
  - Thyroid disorder [Unknown]
  - COVID-19 [Unknown]
